FAERS Safety Report 10518740 (Version 2)
Quarter: 2014Q4

REPORT INFORMATION
  Report Type: Spontaneous
  Country: IT (occurrence: IT)
  Receive Date: 20141015
  Receipt Date: 20141015
  Transmission Date: 20150528
  Serious: Yes (Hospitalization)
  Sender: FDA-Public Use
  Company Number: IT-LEO PHARMA-227694

PATIENT
  Age: 54 Year
  Sex: Female

DRUGS (1)
  1. PICATO [Suspect]
     Active Substance: INGENOL MEBUTATE
     Indication: ACTINIC KERATOSIS
     Route: 061
     Dates: start: 20140508, end: 20140508

REACTIONS (5)
  - Incorrect drug administration duration [Unknown]
  - Dermatitis bullous [Recovering/Resolving]
  - Headache [Recovering/Resolving]
  - Aphthous stomatitis [Recovering/Resolving]
  - Application site pain [Recovering/Resolving]

NARRATIVE: CASE EVENT DATE: 20140509
